FAERS Safety Report 19525551 (Version 1)
Quarter: 2021Q3

REPORT INFORMATION
  Report Type: Spontaneous
  Country: US (occurrence: US)
  Receive Date: 20210712
  Receipt Date: 20210712
  Transmission Date: 20211014
  Serious: No
  Sender: FDA-Public Use
  Company Number: None

PATIENT
  Age: 63 Year
  Sex: Male
  Weight: 65.77 kg

DRUGS (1)
  1. TRIAZOLAM 0.25MG [Suspect]
     Active Substance: TRIAZOLAM
     Indication: SLEEP DISORDER
     Route: 048
     Dates: start: 20210325, end: 20210326

REACTIONS (2)
  - Near drowning [None]
  - Nightmare [None]

NARRATIVE: CASE EVENT DATE: 20210325
